FAERS Safety Report 5054015-3 (Version None)
Quarter: 2006Q3

REPORT INFORMATION
  Report Type: 
  Country: None (occurrence: None)
  Receive Date: 20060713
  Receipt Date: 20060626
  Transmission Date: 20061208
  Serious: Yes (Other)
  Sender: FDA-Public Use
  Company Number: 2006RR-02851

PATIENT
  Age: 59 Year
  Sex: Male

DRUGS (1)
  1. SIMVASTATIN [Suspect]
     Indication: HYPERCHOLESTEROLAEMIA
     Dosage: 20 MG, QD, ORAL
     Route: 048

REACTIONS (3)
  - EPIDERMAL NECROSIS [None]
  - LYMPHOCYTIC INFILTRATION [None]
  - SYSTEMIC LUPUS ERYTHEMATOSUS [None]
